FAERS Safety Report 12573133 (Version 1)
Quarter: 2016Q3

REPORT INFORMATION
  Report Type: Spontaneous
  Country: GB (occurrence: None)
  Receive Date: 20160719
  Receipt Date: 20160719
  Transmission Date: 20161109
  Serious: Yes (Disabling)
  Sender: FDA-Public Use
  Company Number: None

PATIENT
  Age: 65 Year
  Sex: Female
  Weight: 70.76 kg

DRUGS (2)
  1. VITAMIN D [Concomitant]
     Active Substance: CHOLECALCIFEROL
  2. PROLIA [Suspect]
     Active Substance: DENOSUMAB
     Indication: OSTEOPOROSIS
     Dosage: EVERY SIX MONTHS INTO THE MUSCLE
     Route: 030
     Dates: start: 20150828

REACTIONS (5)
  - Gastritis [None]
  - Pancreatitis [None]
  - Dysphonia [None]
  - Abdominal pain [None]
  - Alopecia [None]

NARRATIVE: CASE EVENT DATE: 20150828
